FAERS Safety Report 19783844 (Version 1)
Quarter: 2021Q3

REPORT INFORMATION
  Report Type: Spontaneous
  Country: US (occurrence: US)
  Receive Date: 20210902
  Receipt Date: 20210902
  Transmission Date: 20211014
  Serious: Yes (Disabling)
  Sender: FDA-Public Use
  Company Number: None

PATIENT
  Age: 35 Year
  Sex: Male
  Weight: 85.5 kg

DRUGS (8)
  1. FLUTICASONE PROPIONATE NASAL SPRAY USP [Concomitant]
     Active Substance: FLUTICASONE PROPIONATE
  2. ALBUTEROL SULFATE INHALATION [Concomitant]
     Active Substance: ALBUTEROL SULFATE
  3. Q10 [Concomitant]
     Active Substance: DIETARY SUPPLEMENT\UBIDECARENONE
  4. CHANTIX [Suspect]
     Active Substance: VARENICLINE TARTRATE
     Indication: SMOKING CESSATION THERAPY
     Dosage: ?          QUANTITY:1 TABLET(S);?
     Route: 048
     Dates: start: 20210713, end: 20210804
  5. LORATADINE D12 TABLET [Concomitant]
  6. DOXYCYCLINE HYCLATE. [Concomitant]
     Active Substance: DOXYCYCLINE HYCLATE
  7. VITAMIN D3 [Concomitant]
     Active Substance: CHOLECALCIFEROL
  8. ACID CONTROLLER [Concomitant]
     Active Substance: FAMOTIDINE

REACTIONS (2)
  - Carcinoembryonic antigen decreased [None]
  - Product quality issue [None]

NARRATIVE: CASE EVENT DATE: 20210803
